FAERS Safety Report 6920310-3 (Version None)
Quarter: 2010Q3

REPORT INFORMATION
  Report Type: 
  Country: None (occurrence: None)
  Receive Date: 20100809
  Receipt Date: 20100726
  Transmission Date: 20110219
  Serious: Yes (Disabling, Other)
  Sender: FDA-Public Use
  Company Number: 2010MA001194

PATIENT
  Age: 47 Year
  Sex: Male

DRUGS (5)
  1. OXYCODONE HCL [Suspect]
     Indication: BACK PAIN
     Dosage: 15 MG;Q4H;PO
     Route: 048
     Dates: start: 20010910
  2. OXYCODONE HCL [Suspect]
     Indication: POST PROCEDURAL COMPLICATION
     Dosage: 15 MG;Q4H;PO
     Route: 048
     Dates: start: 20010910
  3. HUMALOG [Concomitant]
  4. LANTUS [Concomitant]
  5. OXYCONTIN [Concomitant]

REACTIONS (2)
  - LYMPHOMA [None]
  - NATURAL KILLER-CELL LYMPHOBLASTIC LYMPHOMA [None]
